FAERS Safety Report 14551304 (Version 2)
Quarter: 2018Q1

REPORT INFORMATION
  Report Type: Spontaneous
  Country: US (occurrence: US)
  Receive Date: 20180220
  Receipt Date: 20180308
  Transmission Date: 20180509
  Serious: No
  Sender: FDA-Public Use
  Company Number: US-JNJFOC-20180210443

PATIENT
  Age: 68 Year
  Sex: Female
  Weight: 59 kg

DRUGS (9)
  1. TAZAROTENE. [Concomitant]
     Active Substance: TAZAROTENE
     Indication: PITYRIASIS RUBRA PILARIS
     Route: 065
  2. FISH OIL [Concomitant]
     Active Substance: FISH OIL
     Route: 065
  3. ATARAX [Concomitant]
     Active Substance: HYDROXYZINE HYDROCHLORIDE
     Indication: PRURITUS
     Route: 065
  4. STELARA [Suspect]
     Active Substance: USTEKINUMAB
     Indication: PITYRIASIS RUBRA PILARIS
     Route: 058
     Dates: start: 201610
  5. NEURONTIN [Concomitant]
     Active Substance: GABAPENTIN
     Route: 065
  6. VALTREX [Concomitant]
     Active Substance: VALACYCLOVIR HYDROCHLORIDE
     Indication: PROPHYLAXIS
     Route: 065
  7. VITAMIN D [Concomitant]
     Active Substance: CHOLECALCIFEROL
     Route: 065
  8. IBUPROFEN. [Concomitant]
     Active Substance: IBUPROFEN
     Route: 048
  9. CHOLECALCIFEROL [Concomitant]
     Active Substance: CHOLECALCIFEROL
     Route: 048

REACTIONS (5)
  - Viral upper respiratory tract infection [Recovered/Resolved]
  - Product use in unapproved indication [Unknown]
  - Off label use [Unknown]
  - Lymphadenopathy [Recovering/Resolving]
  - Pityriasis rubra pilaris [Unknown]

NARRATIVE: CASE EVENT DATE: 201610
